FAERS Safety Report 7376579-7 (Version None)
Quarter: 2011Q1

REPORT INFORMATION
  Report Type: 
  Country: None (occurrence: None)
  Receive Date: 20110325
  Receipt Date: 20110316
  Transmission Date: 20110831
  Serious: Yes (Death)
  Sender: FDA-Public Use
  Company Number: US-MYLANLABS-2011S1006116

PATIENT
  Sex: Female

DRUGS (1)
  1. ZONISAMIDE [Suspect]

REACTIONS (1)
  - KETOACIDOSIS [None]
